FAERS Safety Report 6088242-3 (Version None)
Quarter: 2009Q1

REPORT INFORMATION
  Report Type: 
  Country: None (occurrence: None)
  Receive Date: 20090224
  Receipt Date: 20090123
  Transmission Date: 20090719
  Serious: No
  Sender: FDA-Public Use
  Company Number: US-BAYER-200910268BCC

PATIENT
  Sex: Male
  Weight: 70 kg

DRUGS (3)
  1. ALEVE [Suspect]
     Indication: NECK PAIN
     Dosage: UNIT DOSE: 220 MG
     Dates: start: 20090123
  2. ALEVE [Suspect]
     Dosage: UNIT DOSE: 220 MG
     Dates: start: 20090123
  3. FLEXERIL [Concomitant]

REACTIONS (1)
  - NECK PAIN [None]
